FAERS Safety Report 8831458 (Version 2)
Quarter: 2015Q2

REPORT INFORMATION
  Report Type: Report from Study
  Country: US (occurrence: US)
  Receive Date: 20121009
  Receipt Date: 20150630
  Transmission Date: 20150821
  Serious: Yes (Death)
  Sender: FDA-Public Use
  Company Number: US-ROCHE-1128516

PATIENT
  Sex: Male

DRUGS (12)
  1. CLOTRIMAZOLE. [Concomitant]
     Active Substance: CLOTRIMAZOLE
     Indication: FUNGAL SKIN INFECTION
     Route: 065
  2. TARCEVA [Suspect]
     Active Substance: ERLOTINIB HYDROCHLORIDE
     Indication: PRODUCT USED FOR UNKNOWN INDICATION
     Route: 048
  3. DARVOCET [Concomitant]
     Active Substance: ACETAMINOPHEN\PROPOXYPHENE HYDROCHLORIDE
     Indication: BACK PAIN
  4. BENADRYL [Concomitant]
     Active Substance: DIPHENHYDRAMINE HYDROCHLORIDE
     Route: 065
  5. AVASTIN [Suspect]
     Active Substance: BEVACIZUMAB
     Indication: MALIGNANT URINARY TRACT NEOPLASM
     Dosage: IN 250ML NORMAL SALINE
     Route: 042
     Dates: start: 20050907
  6. LUNESTA [Concomitant]
     Active Substance: ESZOPICLONE
     Indication: INSOMNIA
     Dosage: EVERYNIGHT AT BEDTIME
     Route: 065
  7. CLARINEX [Concomitant]
     Active Substance: DESLORATADINE
     Dosage: 2 TABLETS
     Route: 065
  8. COUMADIN [Suspect]
     Active Substance: WARFARIN SODIUM
     Indication: PRODUCT USED FOR UNKNOWN INDICATION
     Route: 065
  9. NITROGLYCERIN. [Concomitant]
     Active Substance: NITROGLYCERIN
     Route: 045
  10. AVASTIN [Suspect]
     Active Substance: BEVACIZUMAB
     Dosage: IN 250ML NORMAL SALINE
     Route: 042
  11. TAGAMET [Concomitant]
     Active Substance: CIMETIDINE
     Dosage: 2 PILLS
     Route: 065
  12. VIBRAMYCIN [Concomitant]
     Active Substance: DOXYCYCLINE
     Route: 065

REACTIONS (24)
  - Ecchymosis [Unknown]
  - Vascular rupture [Unknown]
  - Skin haemorrhage [Recovered/Resolved]
  - Prothrombin time prolonged [Unknown]
  - Back pain [Unknown]
  - Burning sensation [Recovered/Resolved]
  - Dysphagia [Unknown]
  - Rhinitis [Unknown]
  - Pruritus [Unknown]
  - Off label use [Unknown]
  - Ear discomfort [Unknown]
  - Fatigue [Unknown]
  - Intestinal haemorrhage [Unknown]
  - Ill-defined disorder [Unknown]
  - Angina pectoris [Unknown]
  - Tremor [Unknown]
  - Ageusia [Unknown]
  - Disease progression [Fatal]
  - Oedema peripheral [Unknown]
  - Ear pain [Unknown]
  - Dermatitis acneiform [Recovered/Resolved]
  - Varicose vein [Unknown]
  - Lip blister [Unknown]
  - Erythema [Unknown]
